FAERS Safety Report 5833479-9 (Version None)
Quarter: 2008Q3

REPORT INFORMATION
  Report Type: 
  Country: None (occurrence: None)
  Receive Date: 20080805
  Receipt Date: 20080730
  Transmission Date: 20090109
  Serious: Yes (Hospitalization, Other)
  Sender: FDA-Public Use
  Company Number: US-BAYER-200827551NA

PATIENT
  Age: 30 Year
  Sex: Female
  Weight: 51 kg

DRUGS (3)
  1. MIRENA [Suspect]
     Indication: CONTRACEPTION
     Route: 015
     Dates: start: 20080108, end: 20080411
  2. MOTRIN [Concomitant]
     Indication: PAIN
     Route: 048
     Dates: start: 20071128
  3. FLAGYL [Concomitant]
     Indication: CELLULITIS
     Route: 048
     Dates: start: 20080107

REACTIONS (3)
  - ABDOMINAL PAIN [None]
  - IUCD COMPLICATION [None]
  - UTERINE RUPTURE [None]
